FAERS Safety Report 26197381 (Version 1)
Quarter: 2025Q4

REPORT INFORMATION
  Report Type: Report from Study
  Country: US (occurrence: US)
  Receive Date: 20251224
  Receipt Date: 20251224
  Transmission Date: 20260117
  Serious: Yes (Other)
  Sender: ABBVIE
  Company Number: US-ABBVIE-6378789

PATIENT
  Age: 73 Year
  Sex: Female

DRUGS (1)
  1. RINVOQ [Suspect]
     Active Substance: UPADACITINIB
     Indication: Rheumatoid arthritis
     Route: 048
     Dates: start: 20250414

REACTIONS (5)
  - Arthralgia [Recovering/Resolving]
  - Anxiety [Unknown]
  - Cardiac murmur [Unknown]
  - Cognitive disorder [Unknown]
  - Stress [Unknown]

NARRATIVE: CASE EVENT DATE: 20250101
